FAERS Safety Report 18847396 (Version 1)
Quarter: 2021Q1

REPORT INFORMATION
  Report Type: Report from Study
  Country: US (occurrence: US)
  Receive Date: 20210203
  Receipt Date: 20210203
  Transmission Date: 20210419
  Serious: No
  Sender: FDA-Public Use
  Company Number: US-EXELIXIS-CABO-20032397

PATIENT
  Sex: Female

DRUGS (7)
  1. FIBER [Concomitant]
     Active Substance: PSYLLIUM HUSK
  2. XARELTO [Concomitant]
     Active Substance: RIVAROXABAN
  3. MULTIVITAMIN [Concomitant]
     Active Substance: VITAMINS
  4. CABOMETYX [Suspect]
     Active Substance: CABOZANTINIB S-MALATE
     Indication: PRODUCT USED FOR UNKNOWN INDICATION
     Dosage: 60 MG, QD
     Route: 048
     Dates: start: 20200715
  5. PREDNISONE. [Concomitant]
     Active Substance: PREDNISONE
  6. TYLENOL [Concomitant]
     Active Substance: ACETAMINOPHEN
  7. PREBIOTICS/PROBIOTICS [Concomitant]

REACTIONS (2)
  - Blister [Unknown]
  - Liver function test abnormal [Unknown]
